FAERS Safety Report 5241751-9 (Version None)
Quarter: 2007Q1

REPORT INFORMATION
  Report Type: 
  Country: None (occurrence: None)
  Receive Date: 20070220
  Receipt Date: 20070212
  Transmission Date: 20070707
  Serious: Yes (Death)
  Sender: FDA-Public Use
  Company Number: DE-ELI_LILLY_AND_COMPANY-DE200702002885

PATIENT
  Age: 57 Year
  Sex: Male

DRUGS (7)
  1. ALIMTA [Suspect]
     Dosage: 977 MG, UNK
     Route: 042
     Dates: start: 20061201, end: 20061227
  2. NEXIUM [Concomitant]
  3. TAVEGIL [Concomitant]
  4. ZOLOFT [Concomitant]
  5. VITAMIN B-12 [Concomitant]
  6. KALINOR [Concomitant]
  7. FOLIC ACID [Concomitant]

REACTIONS (1)
  - GASTRIC ULCER HAEMORRHAGE [None]
